FAERS Safety Report 16691619 (Version 1)
Quarter: 2019Q3

REPORT INFORMATION
  Report Type: Spontaneous
  Country: US (occurrence: US)
  Receive Date: 20190624
  Receipt Date: 20190624
  Transmission Date: 20191004
  Serious: Yes (Disabling)
  Sender: FDA-Public Use
  Company Number: None

PATIENT
  Age: 42 Year
  Sex: Male
  Weight: 90.72 kg

DRUGS (20)
  1. MELATONIN [Concomitant]
     Active Substance: MELATONIN
  2. GEMFIBROZIL. [Suspect]
     Active Substance: GEMFIBROZIL
     Indication: BLOOD CHOLESTEROL
     Route: 048
     Dates: start: 2004, end: 2005
  3. GARLIC. [Concomitant]
     Active Substance: GARLIC
  4. RISPERDAL [Concomitant]
     Active Substance: RISPERIDONE
  5. METFORMIN [Suspect]
     Active Substance: METFORMIN HYDROCHLORIDE
  6. CPAP ANTI PHYCHOTIC HALDOL [Concomitant]
  7. NORTRIPTYLINE [Concomitant]
     Active Substance: NORTRIPTYLINE
  8. ALLUPORINOL [Concomitant]
  9. MILK THISTLE [Concomitant]
     Active Substance: DIETARY SUPPLEMENT\HERBALS\MILK THISTLE
  10. VISION D [Concomitant]
  11. WELLBUTRIN [Concomitant]
     Active Substance: BUPROPION HYDROCHLORIDE
  12. TEA [Concomitant]
     Active Substance: TEA LEAF
  13. GINKO BILOABA [Concomitant]
  14. CHROMIUM [Concomitant]
     Active Substance: CHROMIC CHLORIDE\CHROMIUM
  15. SOLAR [Concomitant]
  16. KLONOPIN [Concomitant]
     Active Substance: CLONAZEPAM
  17. DILTIAZEM. [Concomitant]
     Active Substance: DILTIAZEM
  18. CINAMON [Concomitant]
  19. MAGNESIUM [Concomitant]
     Active Substance: MAGNESIUM
  20. MELATONIN [Concomitant]
     Active Substance: MELATONIN

REACTIONS (2)
  - Nephropathy [None]
  - Liver disorder [None]

NARRATIVE: CASE EVENT DATE: 2005
